FAERS Safety Report 16030421 (Version 1)
Quarter: 2019Q1

REPORT INFORMATION
  Report Type: Spontaneous
  Country: US (occurrence: US)
  Receive Date: 20190304
  Receipt Date: 20190304
  Transmission Date: 20190418
  Serious: No
  Sender: FDA-Public Use
  Company Number: US-ASTRAZENECA-2019SE30263

PATIENT
  Sex: Male

DRUGS (3)
  1. TAMOXIFEN [Suspect]
     Active Substance: TAMOXIFEN
     Route: 048
  2. QUETIAPINE. [Suspect]
     Active Substance: QUETIAPINE
     Route: 048
  3. LYRICA [Suspect]
     Active Substance: PREGABALIN
     Indication: DEPRESSION
     Route: 065

REACTIONS (8)
  - Myoclonus [Unknown]
  - Dysarthria [Unknown]
  - Euphoric mood [Unknown]
  - Oedema peripheral [Unknown]
  - Drug ineffective [Unknown]
  - Dyskinesia [Unknown]
  - Dystonia [Unknown]
  - Constipation [Unknown]
